FAERS Safety Report 8541301-5 (Version None)
Quarter: 2012Q3

REPORT INFORMATION
  Report Type: 
  Country: None (occurrence: None)
  Receive Date: 20120726
  Receipt Date: 20120723
  Transmission Date: 20120928
  Serious: No
  Sender: FDA-Public Use
  Company Number: US-PFIZER INC-2012177519

PATIENT
  Sex: Female

DRUGS (3)
  1. DEPO-PROVERA [Suspect]
     Indication: CONTRACEPTION
     Dosage: UNK, ONCE
     Dates: start: 20120630
  2. VICODIN [Concomitant]
     Indication: FIBROMYALGIA
     Dosage: UNK
  3. METAXALONE [Concomitant]
     Indication: FIBROMYALGIA
     Dosage: UNK

REACTIONS (10)
  - BREAST ENLARGEMENT [None]
  - JOINT SWELLING [None]
  - BREAST TENDERNESS [None]
  - FATIGUE [None]
  - PIGMENTATION DISORDER [None]
  - VOMITING [None]
  - FEELING ABNORMAL [None]
  - ABDOMINAL DISTENSION [None]
  - BREAST HYPERPLASIA [None]
  - NAUSEA [None]
